FAERS Safety Report 7454017-3 (Version None)
Quarter: 2011Q2

REPORT INFORMATION
  Report Type: 
  Country: None (occurrence: None)
  Receive Date: 20110502
  Receipt Date: 20110420
  Transmission Date: 20111010
  Serious: Yes (Death, Hospitalization)
  Sender: FDA-Public Use
  Company Number: US-BAYER-2011-035764

PATIENT
  Age: 55 Year
  Sex: Male

DRUGS (5)
  1. METHADONE [Suspect]
     Indication: PAIN
     Dosage: 120 MG, QD
     Dates: start: 20070518
  2. METHADONE [Suspect]
     Dosage: 180 MG, QD
  3. METHADONE [Suspect]
     Dosage: 150 MG, QD
  4. AMITRIPTYLINE [Suspect]
     Dosage: UNK
     Dates: start: 20050124
  5. LEVITRA [Suspect]
     Indication: PAIN
     Dosage: UNK
     Dates: start: 20060724

REACTIONS (1)
  - ELECTROCARDIOGRAM QT PROLONGED [None]
